FAERS Safety Report 23804470 (Version 1)
Quarter: 2024Q2

REPORT INFORMATION
  Report Type: Report from Study
  Country: CN (occurrence: CN)
  Receive Date: 20240501
  Receipt Date: 20240501
  Transmission Date: 20240716
  Serious: Yes (Death, Other)
  Sender: FDA-Public Use
  Company Number: CN-PFIZER INC-PV202400055650

PATIENT
  Age: 8 Month
  Sex: Male

DRUGS (10)
  1. METHYLPREDNISOLONE SODIUM SUCCINATE [Suspect]
     Active Substance: METHYLPREDNISOLONE SODIUM SUCCINATE
     Indication: Epstein-Barr virus infection
     Dosage: UNK UNK, CYCLIC
  2. METHYLPREDNISOLONE SODIUM SUCCINATE [Suspect]
     Active Substance: METHYLPREDNISOLONE SODIUM SUCCINATE
     Indication: Familial haemophagocytic lymphohistiocytosis
  3. ASPARAGINASE [Suspect]
     Active Substance: ASPARAGINASE
     Indication: Epstein-Barr virus infection
     Dosage: UNK UNK, CYCLIC
  4. ASPARAGINASE [Suspect]
     Active Substance: ASPARAGINASE
     Indication: Familial haemophagocytic lymphohistiocytosis
  5. DOXORUBICIN HYDROCHLORIDE [Suspect]
     Active Substance: DOXORUBICIN HYDROCHLORIDE
     Indication: Epstein-Barr virus infection
     Dosage: UNK, CYCLIC
  6. DOXORUBICIN HYDROCHLORIDE [Suspect]
     Active Substance: DOXORUBICIN HYDROCHLORIDE
     Indication: Familial haemophagocytic lymphohistiocytosis
  7. ETOPOSIDE [Suspect]
     Active Substance: ETOPOSIDE
     Indication: Epstein-Barr virus infection
     Dosage: UNK, CYCLIC
  8. ETOPOSIDE [Suspect]
     Active Substance: ETOPOSIDE
     Indication: Familial haemophagocytic lymphohistiocytosis
  9. RUXOLITINIB [Concomitant]
     Active Substance: RUXOLITINIB
     Indication: Epstein-Barr virus infection
     Dosage: UNK
  10. RUXOLITINIB [Concomitant]
     Active Substance: RUXOLITINIB
     Indication: Familial haemophagocytic lymphohistiocytosis

REACTIONS (2)
  - Myelosuppression [Fatal]
  - Therapy non-responder [Fatal]
